FAERS Safety Report 4323760-7 (Version None)
Quarter: 2004Q1

REPORT INFORMATION
  Report Type: 
  Country: None (occurrence: None)
  Receive Date: 20040319
  Receipt Date: 20040315
  Transmission Date: 20041129
  Serious: Yes (Other)
  Sender: FDA-Public Use
  Company Number: 200408984

PATIENT

DRUGS (1)
  1. STREPTOKINASE (STREPTOKINASE) [Suspect]
     Dates: start: 20010101

REACTIONS (1)
  - UNEVALUABLE EVENT [None]
